FAERS Safety Report 12658532 (Version 1)
Quarter: 2016Q3

REPORT INFORMATION
  Report Type: Spontaneous
  Country: US (occurrence: None)
  Receive Date: 20160816
  Receipt Date: 20160816
  Transmission Date: 20161109
  Serious: Yes (Hospitalization, Disabling, Other)
  Sender: FDA-Public Use
  Company Number: None

PATIENT
  Age: 29 Year
  Sex: Male
  Weight: 99.79 kg

DRUGS (1)
  1. CREST PRO-HEALTH RINSE [Suspect]
     Active Substance: CETYLPYRIDINIUM CHLORIDE
     Indication: DENTAL DISORDER PROPHYLAXIS
     Dosage: 1 TEASPOON(S) TWICE A DAY TAKEN BY MOUTH
     Route: 048
     Dates: start: 20160811, end: 20160812

REACTIONS (3)
  - Discomfort [None]
  - Hypoaesthesia [None]
  - Facial paralysis [None]

NARRATIVE: CASE EVENT DATE: 20160812
